FAERS Safety Report 6540583-9 (Version None)
Quarter: 2010Q1

REPORT INFORMATION
  Report Type: 
  Country: None (occurrence: None)
  Receive Date: 20100118
  Receipt Date: 20100106
  Transmission Date: 20100710
  Serious: Yes (Other)
  Sender: FDA-Public Use
  Company Number: US-BAYER-200941158NA

PATIENT
  Age: 49 Year
  Sex: Female

DRUGS (4)
  1. BETASERON [Suspect]
     Indication: RELAPSING-REMITTING MULTIPLE SCLEROSIS
     Dosage: TOTAL DAILY DOSE: 8 MIU
     Route: 058
     Dates: start: 20090519, end: 20091102
  2. BETASERON [Suspect]
     Route: 058
     Dates: start: 20080111, end: 20090412
  3. CIPRO [Suspect]
     Indication: DRUG USE FOR UNKNOWN INDICATION
     Route: 065
  4. ULTRAM [Suspect]
     Indication: DRUG USE FOR UNKNOWN INDICATION
     Route: 065

REACTIONS (13)
  - DEHYDRATION [None]
  - DRUG HYPERSENSITIVITY [None]
  - DYSPNOEA [None]
  - HEADACHE [None]
  - IMPAIRED HEALING [None]
  - INFLUENZA [None]
  - MIGRAINE [None]
  - NAUSEA [None]
  - PRURITUS GENERALISED [None]
  - RASH [None]
  - SCAR [None]
  - UPPER RESPIRATORY TRACT INFECTION [None]
  - URTICARIA [None]
